FAERS Safety Report 5366045-2 (Version None)
Quarter: 2007Q2

REPORT INFORMATION
  Report Type: 
  Country: None (occurrence: None)
  Receive Date: 20070611
  Receipt Date: 20070123
  Transmission Date: 20071010
  Serious: Yes (Death)
  Sender: FDA-Public Use
  Company Number: USA-2007-0026298

PATIENT
  Age: 37 Year
  Sex: Male

DRUGS (8)
  1. OXYCODONE HCL [Suspect]
     Indication: DRUG ABUSER
  2. MORPHINE SULFATE [Suspect]
     Indication: DRUG ABUSER
  3. ETHANOL (ETHANOL) [Suspect]
     Indication: ALCOHOL USE
  4. HYDROCODONE BITARTRATE [Suspect]
     Indication: DRUG ABUSER
  5. DIHYDROCODEINE COMPOUND [Suspect]
     Indication: DRUG ABUSER
  6. METHADONE HCL [Suspect]
     Indication: DRUG ABUSER
  7. COCAINE (COCAINE) [Suspect]
     Indication: DRUG ABUSER
  8. ACETAMINOPHEN [Suspect]
     Indication: DRUG ABUSER

REACTIONS (2)
  - MULTIPLE DRUG OVERDOSE ACCIDENTAL [None]
  - SUBSTANCE ABUSE [None]
